FAERS Safety Report 17746394 (Version 6)
Quarter: 2020Q4

REPORT INFORMATION
  Report Type: Spontaneous
  Country: US (occurrence: US)
  Receive Date: 20200505
  Receipt Date: 20201223
  Transmission Date: 20210113
  Serious: Yes (Other)
  Sender: FDA-Public Use
  Company Number: US-SHIRE-US202015331

PATIENT
  Sex: Female
  Weight: 62.59 kg

DRUGS (24)
  1. GAMMAGARD LIQUID [Suspect]
     Active Substance: HUMAN IMMUNOGLOBULIN G
     Dosage: 10 GRAM, 1X/WEEK
     Route: 058
     Dates: start: 20140509
  2. CALCIUM [Concomitant]
     Active Substance: CALCIUM
  3. NEURONTIN [Concomitant]
     Active Substance: GABAPENTIN
  4. XOPENEX [Concomitant]
     Active Substance: LEVALBUTEROL HYDROCHLORIDE
  5. CALCIUM 600 WITH VITAMIN D3 [Concomitant]
     Active Substance: CALCIUM CARBONATE\VITAMIN D
  6. POTASSIUM [Concomitant]
     Active Substance: POTASSIUM
  7. GAMMAGARD LIQUID [Suspect]
     Active Substance: HUMAN IMMUNOGLOBULIN G
     Indication: IMMUNODEFICIENCY COMMON VARIABLE
     Dosage: 10 GRAM, 1X/WEEK
     Route: 058
     Dates: start: 20140129
  8. GAMMAGARD LIQUID [Suspect]
     Active Substance: HUMAN IMMUNOGLOBULIN G
     Dosage: 10 GRAM, 1X/WEEK
     Route: 058
     Dates: start: 20140131
  9. LMX4 [Concomitant]
     Active Substance: LIDOCAINE
  10. PRAVACHOL [Concomitant]
     Active Substance: PRAVASTATIN SODIUM
  11. XOPENEX HFA [Concomitant]
     Active Substance: LEVALBUTEROL TARTRATE
  12. PREDNISONE. [Concomitant]
     Active Substance: PREDNISONE
  13. PROTONIX [OMEPRAZOLE] [Concomitant]
     Active Substance: OMEPRAZOLE
  14. AMITRIPTYLINE HCL [Concomitant]
     Active Substance: AMITRIPTYLINE
  15. DIPHENHYDRAMINE. [Concomitant]
     Active Substance: DIPHENHYDRAMINE
  16. POTASSIUM CHLORIDE. [Concomitant]
     Active Substance: POTASSIUM CHLORIDE
  17. DICYCLOMINE [Concomitant]
     Active Substance: DICYCLOMINE HYDROCHLORIDE
  18. AMITRIPTYLINE [Concomitant]
     Active Substance: AMITRIPTYLINE
  19. MECLIZINE [Concomitant]
     Active Substance: MECLIZINE HYDROCHLORIDE
  20. MECLIZINE HCL [Concomitant]
     Active Substance: MECLIZINE HYDROCHLORIDE
  21. GAMMAGARD LIQUID [Suspect]
     Active Substance: HUMAN IMMUNOGLOBULIN G
     Dosage: 10 GRAM, 1X/WEEK
     Route: 058
     Dates: start: 20140220
  22. EPINEPHRINE. [Concomitant]
     Active Substance: EPINEPHRINE
  23. SYMBICORT [Concomitant]
     Active Substance: BUDESONIDE\FORMOTEROL FUMARATE DIHYDRATE
  24. DICYCLOMINE HCL [Concomitant]
     Active Substance: DICYCLOMINE HYDROCHLORIDE

REACTIONS (4)
  - Sinusitis [Not Recovered/Not Resolved]
  - Joint injury [Unknown]
  - Cellulitis [Unknown]
  - Fall [Unknown]
